FAERS Safety Report 20807564 (Version 2)
Quarter: 2022Q2

REPORT INFORMATION
  Report Type: Spontaneous
  Country: IN (occurrence: IN)
  Receive Date: 20220510
  Receipt Date: 20220513
  Transmission Date: 20220720
  Serious: Yes (Other)
  Sender: FDA-Public Use
  Company Number: IN-BAUSCH-BL-2022-010907

PATIENT
  Age: 76 Year
  Sex: Male

DRUGS (1)
  1. LATANOPROST [Suspect]
     Active Substance: LATANOPROST
     Indication: Open angle glaucoma
     Dosage: ONCE DAILY FOR THE PAST 8 YEARS
     Route: 065

REACTIONS (2)
  - Ophthalmic herpes simplex [Recovered/Resolved]
  - Herpes simplex reactivation [Recovered/Resolved]
